FAERS Safety Report 6557758-5 (Version None)
Quarter: 2010Q1

REPORT INFORMATION
  Report Type: 
  Country: None (occurrence: None)
  Receive Date: 20100125
  Receipt Date: 20100105
  Transmission Date: 20100710
  Serious: No
  Sender: FDA-Public Use
  Company Number: 2010-00011

PATIENT
  Sex: Female

DRUGS (1)
  1. ZICAM HOMEOPATHIC PRODUCTS [Suspect]

REACTIONS (2)
  - AGEUSIA [None]
  - ANOSMIA [None]
